FAERS Safety Report 7310749-9 (Version None)
Quarter: 2011Q1

REPORT INFORMATION
  Report Type: 
  Country: None (occurrence: None)
  Receive Date: 20110224
  Receipt Date: 20110218
  Transmission Date: 20110831
  Serious: Yes (Other)
  Sender: FDA-Public Use
  Company Number: FR-SANOFI-AVENTIS-2011SA010708

PATIENT
  Age: 51 Year
  Sex: Female

DRUGS (2)
  1. AMIODARONE [Concomitant]
     Indication: ATRIAL FIBRILLATION
     Route: 048
     Dates: end: 20110101
  2. MULTAQ [Suspect]
     Indication: ATRIAL FIBRILLATION
     Route: 048
     Dates: start: 20110101

REACTIONS (4)
  - ASTHENIA [None]
  - JAUNDICE [None]
  - HEPATITIS CHOLESTATIC [None]
  - NAUSEA [None]
